FAERS Safety Report 18943359 (Version 2)
Quarter: 2021Q1

REPORT INFORMATION
  Report Type: Spontaneous
  Country: US (occurrence: US)
  Receive Date: 20210226
  Receipt Date: 20210303
  Transmission Date: 20210420
  Serious: No
  Sender: FDA-Public Use
  Company Number: NVSC2021US036541

PATIENT
  Sex: Female

DRUGS (1)
  1. CARBAMAZEPINE. [Suspect]
     Active Substance: CARBAMAZEPINE
     Indication: NEUROPATHY PERIPHERAL
     Dosage: 100 MG, QD (AT NIGHT)
     Route: 065
     Dates: start: 20210205

REACTIONS (8)
  - Dizziness [Unknown]
  - Intentional product use issue [Unknown]
  - Coordination abnormal [Unknown]
  - Spinal disorder [Unknown]
  - Gait disturbance [Unknown]
  - Clumsiness [Unknown]
  - Musculoskeletal stiffness [Unknown]
  - Somnolence [Unknown]
